FAERS Safety Report 13036815 (Version 20)
Quarter: 2020Q1

REPORT INFORMATION
  Report Type: Spontaneous
  Country: US (occurrence: US)
  Receive Date: 20161216
  Receipt Date: 20200128
  Transmission Date: 20200409
  Serious: Yes (Hospitalization, Other)
  Sender: FDA-Public Use
  Company Number: US-ACTELION-A-US2016-147060

PATIENT
  Age: 1 Year
  Sex: Male

DRUGS (24)
  1. TRACLEER [Suspect]
     Active Substance: BOSENTAN
     Indication: PULMONARY ARTERIAL HYPERTENSION
     Dosage: 32 MG, BID
     Route: 048
     Dates: start: 20190607
  2. TRACLEER [Suspect]
     Active Substance: BOSENTAN
     Dosage: 16 MG, BID
     Route: 048
     Dates: start: 20190423
  3. FUROSEMIDE. [Concomitant]
     Active Substance: FUROSEMIDE
     Dosage: 0.7 ML, BID
  4. RANITIDINE. [Concomitant]
     Active Substance: RANITIDINE
     Dosage: 0.5 ML, BID
  5. MVI [Concomitant]
     Active Substance: VITAMINS
     Dosage: 0.5 ML, QD
     Route: 048
  6. TRACLEER [Suspect]
     Active Substance: BOSENTAN
     Dosage: 16 MG, BID
     Route: 048
     Dates: end: 20180615
  7. TRACLEER [Suspect]
     Active Substance: BOSENTAN
     Dosage: 7.6 MG, BID
     Route: 048
     Dates: start: 201610
  8. VENTAVIS [Concomitant]
     Active Substance: ILOPROST
     Indication: PULMONARY ARTERIAL HYPERTENSION
  9. SODIUM CHLORIDE. [Concomitant]
     Active Substance: SODIUM CHLORIDE
     Dosage: 0.5 G, BID
  10. SILDENAFIL. [Concomitant]
     Active Substance: SILDENAFIL
     Dosage: 4 MG, QID
  11. RANITIDINE. [Concomitant]
     Active Substance: RANITIDINE
     Dosage: 22.5 MG, UNK
  12. SILDENAFIL. [Concomitant]
     Active Substance: SILDENAFIL
     Dosage: 5 UNK, UNK
  13. TREPROSTINIL. [Concomitant]
     Active Substance: TREPROSTINIL
  14. CHLOROTHIAZIDE. [Concomitant]
     Active Substance: CHLOROTHIAZIDE
     Dosage: 6 UNK, UNK
  15. TRACLEER [Suspect]
     Active Substance: BOSENTAN
     Dosage: 32 MG (IN 3 ML WATER), BID
     Route: 048
     Dates: start: 20161011, end: 20200103
  16. TRACLEER [Suspect]
     Active Substance: BOSENTAN
     Dosage: 62.5 MG, BID
     Route: 048
     Dates: start: 20170402
  17. TRACLEER [Suspect]
     Active Substance: BOSENTAN
     Dosage: 9.25 MG, BID
     Route: 048
     Dates: start: 20180208
  18. REMODULIN [Concomitant]
     Active Substance: TREPROSTINIL
     Dosage: UNK
  19. SPIRONOLACTONE. [Concomitant]
     Active Substance: SPIRONOLACTONE
     Dosage: 10 MG, Q12HRS
  20. POTASSIUM CHLORIDE. [Concomitant]
     Active Substance: POTASSIUM CHLORIDE
     Dosage: 4 MEQ, Q12HRS
  21. METOCLOPRAMIDE. [Concomitant]
     Active Substance: METOCLOPRAMIDE
     Dosage: 0.5 MG, Q6HRS
  22. TRACLEER [Suspect]
     Active Substance: BOSENTAN
     Dosage: 10 MG, BID
     Route: 048
     Dates: start: 20161011
  23. TRACLEER [Suspect]
     Active Substance: BOSENTAN
     Dosage: 15.62 MG, BID
     Route: 048
  24. FUROSEMIDE. [Concomitant]
     Active Substance: FUROSEMIDE
     Dosage: 2.5 MG, TID

REACTIONS (22)
  - Dyspnoea [Unknown]
  - Respiratory distress [Unknown]
  - Viral infection [Recovering/Resolving]
  - Blood alkaline phosphatase increased [Recovered/Resolved]
  - Aspartate aminotransferase increased [Recovered/Resolved]
  - Gastroenteritis [Recovered/Resolved]
  - Adams-Oliver syndrome [Unknown]
  - Pulmonary hypertension [Unknown]
  - Alanine aminotransferase increased [Recovered/Resolved]
  - Product use issue [Unknown]
  - Pyrexia [Recovering/Resolving]
  - Oxygen saturation decreased [Unknown]
  - Pneumonia [Unknown]
  - Respiratory syncytial virus infection [Recovering/Resolving]
  - Pulmonary vein stenosis [Unknown]
  - Superinfection [Unknown]
  - Liver function test increased [Recovered/Resolved]
  - Dehydration [Recovered/Resolved]
  - Gastrostomy [Unknown]
  - Respiratory tract infection [Unknown]
  - Respiratory failure [Unknown]
  - Metapneumovirus infection [Unknown]

NARRATIVE: CASE EVENT DATE: 20170821
